FAERS Safety Report 20482072 (Version 1)
Quarter: 2022Q1

REPORT INFORMATION
  Report Type: Report from Study
  Country: US (occurrence: US)
  Receive Date: 20220216
  Receipt Date: 20220216
  Transmission Date: 20220423
  Serious: Yes (Hospitalization)
  Sender: FDA-Public Use
  Company Number: US-SEATTLE GENETICS-2022SGN01220

PATIENT
  Age: 11 Year
  Sex: Female

DRUGS (6)
  1. BRENTUXIMAB VEDOTIN [Suspect]
     Active Substance: BRENTUXIMAB VEDOTIN
     Indication: Hodgkin^s disease
     Dosage: 1.8 MG/KG, ON DAY 1 OF EVERY 21-DAY CYCLE
     Route: 042
     Dates: start: 20160929, end: 20160929
  2. DOXORUBICIN [Suspect]
     Active Substance: DOXORUBICIN
     Indication: Hodgkin^s disease
     Dosage: 25 MG/M2, ON DAYS 1 AND 2 OF EVERY 21 DAY CYCLE
     Route: 042
     Dates: start: 20160929
  3. VINCRISTINE [Suspect]
     Active Substance: VINCRISTINE
     Indication: Hodgkin^s disease
     Dosage: 1.4 MG/M2, ON DAY 8 OF EVERY 21-DAY CYCLE
     Route: 042
  4. ETOPOSIDE [Suspect]
     Active Substance: ETOPOSIDE
     Indication: Hodgkin^s disease
     Dosage: 125 MG/M2, ON DAYS 1-3 OF EVERY 21-DAY CYCLE
     Route: 042
     Dates: start: 20160929
  5. PREDNISONE [Suspect]
     Active Substance: PREDNISONE
     Indication: Hodgkin^s disease
     Dosage: 20 MG/M2, BID ON DAYS 1-7 OF EVERY 21-DAY CYCLE
     Route: 048
     Dates: start: 20160929
  6. CYCLOPHOSPHAMIDE [Suspect]
     Active Substance: CYCLOPHOSPHAMIDE
     Indication: Hodgkin^s disease
     Dosage: 600 MG/M2 ON DAYS 1 AND 2 OF EVERY 21-DAY CYCLE
     Route: 042
     Dates: start: 20160929

REACTIONS (1)
  - Hypotension [Recovered/Resolved]

NARRATIVE: CASE EVENT DATE: 20161003
